FAERS Safety Report 16290692 (Version 2)
Quarter: 2019Q2

REPORT INFORMATION
  Report Type: Spontaneous
  Country: US (occurrence: US)
  Receive Date: 20190509
  Receipt Date: 20190618
  Transmission Date: 20190711
  Serious: Yes (Hospitalization, Other)
  Sender: FDA-Public Use
  Company Number: US-PFIZER INC-2019189147

PATIENT
  Age: 39 Year
  Sex: Male
  Weight: 36.29 kg

DRUGS (20)
  1. SENOKOT [Concomitant]
     Active Substance: SENNOSIDES
     Dosage: UNK
  2. KEPPRA [Concomitant]
     Active Substance: LEVETIRACETAM
     Dosage: UNK UNK, 2X/DAY(TAKE 1.5 TAB AM (7AM) TAKE 1.0 TAB PM (6PM))
  3. PEDIA-LAX STOOL SOFTENER [Concomitant]
     Dosage: 2 DF, 1X/DAY(10AM)
  4. FLEET ENEMA [Concomitant]
     Active Substance: SODIUM PHOSPHATE, DIBASIC\SODIUM PHOSPHATE, MONOBASIC
     Dosage: UNK UNK, AS NEEDED
  5. ROBITUSSIN COUGH AND CHEST CONGESTION DM [Suspect]
     Active Substance: DEXTROMETHORPHAN HYDROBROMIDE\GUAIFENESIN
     Indication: COUGH
     Dosage: 10 ML, UNK
  6. ROBITUSSIN MAXIMUM STRENGTH COUGH PLUS CHEST CONGESTION DM [Suspect]
     Active Substance: DEXTROMETHORPHAN HYDROBROMIDE\GUAIFENESIN
     Indication: COUGH
     Dosage: 5 ML, UNK VIA G TUBE
     Dates: end: 2019
  7. MIRALAX [Suspect]
     Active Substance: POLYETHYLENE GLYCOL 3350
     Indication: CONSTIPATION
     Dosage: UNK
  8. TYLENOL EXTRA STRENGTH [Concomitant]
     Active Substance: ACETAMINOPHEN
     Dosage: UNK UNK, AS NEEDED (500 MG 1-2 TAB Q 6)
  9. ROBITUSSIN COUGH AND CHEST CONGESTION DM [Suspect]
     Active Substance: DEXTROMETHORPHAN HYDROBROMIDE\GUAIFENESIN
     Dosage: 5 ML, UNK  (4 YEARS HE HAS BEEN ON 5ML )
  10. CLARITIN [Concomitant]
     Active Substance: LORATADINE
     Dosage: 10 MG, 1X/DAY(5AM)
  11. GABAPENTIN. [Concomitant]
     Active Substance: GABAPENTIN
     Dosage: 300 MG, 2X/DAY(TIME: 8AM + TIME: 7PM) VIA G TUBE
  12. SENOKOT-S [Concomitant]
     Active Substance: DOCUSATE SODIUM\SENNOSIDES
  13. IPRATROPIUM BROMIDE AND ALBUTEROL SULFATE [Concomitant]
     Active Substance: ALBUTEROL SULFATE\IPRATROPIUM BROMIDE
     Dosage: UNK UNK, AS NEEDED
  14. DULCOLAX (BISACODYL) [Concomitant]
     Active Substance: BISACODYL
     Dosage: UNK UNK, AS NEEDED
  15. HYDROXYZINE HCL [Concomitant]
     Active Substance: HYDROXYZINE HYDROCHLORIDE
     Dosage: UNK UNK, 1-2 TAB PER G TUBE Q 6-8 HR AS NEEDED
  16. LORAZEPAM. [Concomitant]
     Active Substance: LORAZEPAM
     Indication: SEIZURE
     Dosage: UNK, AS NEEDED 1-2 TABS PER G-TUBE AS NEEDED (FOR 2 SEIZURES IN A DAY),,
  17. MELATONIN [CALCIUM;MELATONIN;PYRIDOXINE HYDROCHLORIDE] [Concomitant]
     Dosage: 3 MG, AS NEEDED (AT BEDTIME PER G TUBE)
  18. SCOPOLAMINE HCL [Concomitant]
     Active Substance: SCOPOLAMINE
     Dosage: 1.5 UG, AS NEEDED (PATCH 1.5 MCG )
     Route: 061
  19. AMLODIPINE [Concomitant]
     Active Substance: AMLODIPINE BESYLATE
     Dosage: 5.0 MG, 1X/DAY (1 TAB DAILY PER GT ,11 AM)
  20. NEXIUM I.V. [Concomitant]
     Active Substance: ESOMEPRAZOLE SODIUM
     Dosage: 40 MG, AS NEEDED(1 TAB DAILY VIA GT)

REACTIONS (8)
  - Acute respiratory distress syndrome [Unknown]
  - Agitation [Recovered/Resolved]
  - Intentional product use issue [Unknown]
  - Emotional distress [Unknown]
  - Feeling abnormal [Recovered/Resolved]
  - Respiratory distress [Recovered/Resolved]
  - Stress [Unknown]
  - Product formulation issue [Unknown]

NARRATIVE: CASE EVENT DATE: 2014
